FAERS Safety Report 25922165 (Version 2)
Quarter: 2025Q4

REPORT INFORMATION
  Report Type: Spontaneous
  Country: EU (occurrence: EU)
  Receive Date: 20251015
  Receipt Date: 20251107
  Transmission Date: 20260118
  Serious: Yes (Other)
  Sender: TEVA
  Company Number: EU-TEVA-VS-3380101

PATIENT
  Age: 30 Year
  Sex: Female

DRUGS (1)
  1. AJOVY [Suspect]
     Active Substance: FREMANEZUMAB-VFRM
     Indication: Migraine
     Dosage: DOSAGE: 225 MG/ML
     Route: 058
     Dates: start: 2024

REACTIONS (1)
  - Cervix carcinoma stage 0 [Unknown]

NARRATIVE: CASE EVENT DATE: 20250101
